FAERS Safety Report 5866101-6 (Version None)
Quarter: 2008Q3

REPORT INFORMATION
  Report Type: 
  Country: None (occurrence: None)
  Receive Date: 20080829
  Receipt Date: 20080820
  Transmission Date: 20090109
  Serious: Yes (Hospitalization)
  Sender: FDA-Public Use
  Company Number: DE-ABBOTT-08P-062-0472547-00

PATIENT
  Sex: Male

DRUGS (2)
  1. TRENANTONE [Suspect]
     Indication: PROSTATE CANCER
     Route: 058
     Dates: start: 20080701
  2. FLUTAMIDE [Concomitant]
     Indication: PROSTATE CANCER
     Route: 048

REACTIONS (3)
  - ENCEPHALOPATHY [None]
  - HYPOTHYROIDISM [None]
  - NEUROPSYCHOLOGICAL TEST ABNORMAL [None]
